FAERS Safety Report 19101173 (Version 1)
Quarter: 2021Q2

REPORT INFORMATION
  Report Type: Spontaneous
  Country: US (occurrence: US)
  Receive Date: 20210406
  Receipt Date: 20210406
  Transmission Date: 20210717
  Serious: Yes (Hospitalization)
  Sender: FDA-Public Use
  Company Number: None

PATIENT
  Sex: Female

DRUGS (21)
  1. FAMOTIDINE. [Concomitant]
     Active Substance: FAMOTIDINE
  2. TEA [Concomitant]
     Active Substance: TEA LEAF
  3. CALCIUM+D3 [Concomitant]
     Active Substance: CALCIUM\CHOLECALCIFEROL
  4. AMOXICILLIN. [Concomitant]
     Active Substance: AMOXICILLIN
  5. METOPROL SUC ER [Concomitant]
     Active Substance: METOPROLOL SUCCINATE
  6. MONTELUKAST [Concomitant]
     Active Substance: MONTELUKAST SODIUM
  7. DIAZEPAM. [Concomitant]
     Active Substance: DIAZEPAM
  8. LEVOTHYROXIN [Concomitant]
     Active Substance: LEVOTHYROXINE
  9. VYNDAMAX [Suspect]
     Active Substance: TAFAMIDIS
     Indication: AMYLOIDOSIS
     Route: 048
     Dates: start: 20201224
  10. CETIRIZINE [Concomitant]
     Active Substance: CETIRIZINE HYDROCHLORIDE
  11. ESTRADIOL. [Concomitant]
     Active Substance: ESTRADIOL
  12. TRAMADOL HCL [Concomitant]
     Active Substance: TRAMADOL HYDROCHLORIDE
  13. DOXYCYC MONO [Concomitant]
     Active Substance: DOXYCYCLINE
  14. FUROSEMIDE. [Concomitant]
     Active Substance: FUROSEMIDE
  15. PREMARIN VAG CRE [Concomitant]
  16. TRIAMCINOLON OIN [Concomitant]
  17. IBANDRONATE [Concomitant]
     Active Substance: IBANDRONATE SODIUM
  18. LIDO/PROLOCN CRE [Concomitant]
  19. TRIAMCINOLON CRE [Concomitant]
  20. ALENDRONATE [Concomitant]
     Active Substance: ALENDRONATE SODIUM
  21. ELIQUIS [Concomitant]
     Active Substance: APIXABAN

REACTIONS (8)
  - Intentional dose omission [None]
  - Delusion [None]
  - Fall [None]
  - Confusional state [None]
  - Hallucination [None]
  - Hip fracture [None]
  - Upper limb fracture [None]
  - Hip arthroplasty [None]
